FAERS Safety Report 17307126 (Version 2)
Quarter: 2020Q1

REPORT INFORMATION
  Report Type: Report from Study
  Country: US (occurrence: US)
  Receive Date: 20200123
  Receipt Date: 20200312
  Transmission Date: 20200409
  Serious: Yes (Other)
  Sender: FDA-Public Use
  Company Number: US-AMGEN-USASL2020000138

PATIENT
  Age: 54 Year
  Sex: Male
  Weight: 129.7 kg

DRUGS (1)
  1. REPATHA [Suspect]
     Active Substance: EVOLOCUMAB
     Indication: HYPERCHOLESTEROLAEMIA
     Dosage: 140 MILLIGRAM, Q2WK
     Route: 065
     Dates: start: 20191015

REACTIONS (5)
  - Rhinorrhoea [Unknown]
  - Spinal stenosis [Not Recovered/Not Resolved]
  - Drug hypersensitivity [Unknown]
  - Mood altered [Unknown]
  - Irritability [Unknown]

NARRATIVE: CASE EVENT DATE: 20191105
